FAERS Safety Report 20738131 (Version 1)
Quarter: 2022Q2

REPORT INFORMATION
  Report Type: Spontaneous
  Country: NL (occurrence: NL)
  Receive Date: 20220422
  Receipt Date: 20220422
  Transmission Date: 20220721
  Serious: Yes (Life-Threatening, Hospitalization)
  Sender: FDA-Public Use
  Company Number: None

PATIENT
  Sex: Male

DRUGS (9)
  1. CLOZAPINE [Suspect]
     Active Substance: CLOZAPINE
     Indication: Bipolar I disorder
     Dosage: 50 MILLIGRAM DAILY; 1 X PER DAY 1 PIECE,CLOZAPINE TABLET  50MG / BRAND NAME NOT SPECIFIED, DURATION
     Dates: start: 2021, end: 20210319
  2. TRESIBA [Concomitant]
     Active Substance: INSULIN DEGLUDEC
     Dosage: 100 UNITS/ML, INSULINE DEGLUDEC 100E/ML INJVLST / TRESIBA FLEXTOUCH INJVLST 100E/ML PEN 3ML,THERAPY
  3. LEVOTHYROXINE [Concomitant]
     Active Substance: LEVOTHYROXINE
     Dosage: 100 UG,LEVOTHYROXINE TABLET 100UG (ACID) / THYRAX DUOTAB TABLET 0.100MG,THERAPY START DATE AND END D
  4. FLUVASTATIN [Concomitant]
     Active Substance: FLUVASTATIN SODIUM
     Dosage: FLUVASTATINE CAPSULE 40MG / BRAND NAME NOT SPECIFIED,THERAPY START DATE AND END DATE : ASKU
  5. NOVORAPID [Concomitant]
     Active Substance: INSULIN ASPART
     Dosage: INJECTION FLUID, 100 UNITS/ML, INSULIN ASPART INJVLST 100E/ML / NOVORAPID INJVLST 100E/ML VIAL 10ML,
  6. VALPROATE SODIUM [Concomitant]
     Active Substance: VALPROATE SODIUM
     Dosage: VALPROIC ACID TABLET MGA 500MG (ACID+NA-SALT) / DEPAKINE CHRONO TABLET MGA 500MG,THERAPY START DATE
  7. LITHIUM CARBONATE [Concomitant]
     Active Substance: LITHIUM CARBONATE
     Dosage: LITHIUM CARBONATE TABLET 400MG / BRAND NAME NOT SPECIFIED,THERAPY START DATE AND END DATE : ASKU
  8. AMLODIPINE [Concomitant]
     Active Substance: AMLODIPINE BESYLATE
     Dosage: AMLODIPINE TABLET   5MG / BRAND NAME NOT SPECIFIED,THERAPY START DATE AND END DATE : ASKU
  9. LORAZEPAM [Concomitant]
     Active Substance: LORAZEPAM
     Dosage: LORAZEPAM TABLET 1MG / BRAND NAME NOT SPECIFIED,THERAPY START DATE AND END DATE : ASKU

REACTIONS (1)
  - Colitis [Recovered/Resolved]
